FAERS Safety Report 5501913-X (Version None)
Quarter: 2007Q4

REPORT INFORMATION
  Report Type: 
  Country: None (occurrence: None)
  Receive Date: 20071030
  Receipt Date: 20071019
  Transmission Date: 20080405
  Serious: Yes (Hospitalization)
  Sender: FDA-Public Use
  Company Number: IT-ROCHE-526302

PATIENT
  Age: 60 Year
  Sex: Female

DRUGS (2)
  1. MYCOPHENOLATE MOFETIL [Suspect]
     Route: 048
     Dates: start: 20070201
  2. FK506 [Suspect]
     Route: 048
     Dates: start: 20070201

REACTIONS (1)
  - THROMBOPHLEBITIS [None]
